FAERS Safety Report 9487143 (Version 1)
Quarter: 2013Q3

REPORT INFORMATION
  Report Type: Spontaneous
  Country: PR (occurrence: None)
  Receive Date: 20130823
  Receipt Date: 20130823
  Transmission Date: 20140515
  Serious: Yes (Life-Threatening, Hospitalization, Other)
  Sender: FDA-Public Use
  Company Number: SYM-2013-09113

PATIENT
  Age: 16 Year
  Sex: Female

DRUGS (2)
  1. BUPROPION HYDROCHLORIDE [Suspect]
     Indication: PRODUCT USED FOR UNKNOWN INDICATION
  2. ARIPIPRAZOLE (ARIPIPRAZOLE) [Suspect]
     Indication: PRODUCT USED FOR UNKNOWN INDICATION

REACTIONS (10)
  - Overdose [None]
  - Unresponsive to stimuli [None]
  - Dyspnoea [None]
  - Convulsion [None]
  - Hypotension [None]
  - Corneal reflex decreased [None]
  - Pupillary reflex impaired [None]
  - Serotonin syndrome [None]
  - Acute respiratory distress syndrome [None]
  - Body temperature increased [None]
